FAERS Safety Report 16580938 (Version 4)
Quarter: 2019Q4

REPORT INFORMATION
  Report Type: Report from Study
  Country: CA (occurrence: CA)
  Receive Date: 20190716
  Receipt Date: 20191122
  Transmission Date: 20200122
  Serious: Yes (Hospitalization, Other)
  Sender: FDA-Public Use
  Company Number: CA-GLAXOSMITHKLINE-CA2019AMR124597

PATIENT
  Age: 62 Year
  Sex: Female

DRUGS (3)
  1. MEPOLIZUMAB [Suspect]
     Active Substance: MEPOLIZUMAB
     Dosage: 100 MG, Z
     Route: 042
  2. MEPOLIZUMAB [Suspect]
     Active Substance: MEPOLIZUMAB
     Dosage: 100 MG, Z
     Route: 042
  3. MEPOLIZUMAB [Suspect]
     Active Substance: MEPOLIZUMAB
     Indication: ASTHMA
     Dosage: 100 MG, Z
     Route: 042
     Dates: start: 20190611

REACTIONS (10)
  - Heart rate irregular [Unknown]
  - Influenza like illness [Unknown]
  - Seizure [Unknown]
  - Rash pruritic [Unknown]
  - Joint dislocation [Unknown]
  - Headache [Unknown]
  - Fungal skin infection [Unknown]
  - Rash erythematous [Unknown]
  - Fall [Unknown]
  - Irregular breathing [Unknown]

NARRATIVE: CASE EVENT DATE: 20190626
